FAERS Safety Report 8602018-1 (Version None)
Quarter: 2012Q3

REPORT INFORMATION
  Report Type: 
  Country: None (occurrence: None)
  Receive Date: 20120817
  Receipt Date: 20120814
  Transmission Date: 20120928
  Serious: Yes (Other)
  Sender: FDA-Public Use
  Company Number: US-PFIZER INC-2012181144

PATIENT
  Age: 55 Year
  Sex: Male
  Weight: 95.238 kg

DRUGS (2)
  1. NEURONTIN [Suspect]
     Indication: SCIATICA
     Dosage: 300 MG, 3X/DAY
     Dates: start: 20120401, end: 20120715
  2. NEURONTIN [Suspect]
     Indication: BACK PAIN

REACTIONS (4)
  - SLUGGISHNESS [None]
  - DIZZINESS [None]
  - VISUAL ACUITY REDUCED [None]
  - VISION BLURRED [None]
